FAERS Safety Report 7687689-9 (Version None)
Quarter: 2011Q3

REPORT INFORMATION
  Report Type: 
  Country: None (occurrence: None)
  Receive Date: 20110817
  Receipt Date: 20110808
  Transmission Date: 20111222
  Serious: Yes (Other)
  Sender: FDA-Public Use
  Company Number: PHHY2011JP72549

PATIENT
  Sex: Male

DRUGS (2)
  1. ZOMETA [Suspect]
     Indication: PROSTATE CANCER
     Dosage: 4 MG, UNK
     Route: 041
     Dates: end: 20110701
  2. DOCETAXEL [Suspect]

REACTIONS (1)
  - OSTEONECROSIS OF JAW [None]
